FAERS Safety Report 10382887 (Version 2)
Quarter: 2018Q4

REPORT INFORMATION
  Report Type: Report from Study
  Country: US (occurrence: US)
  Receive Date: 20140813
  Receipt Date: 20181122
  Transmission Date: 20190204
  Serious: Yes (Hospitalization, Other)
  Sender: FDA-Public Use
  Company Number: US-SA-2014SA014793

PATIENT
  Age: 48 Year
  Sex: Male

DRUGS (2)
  1. AGALSIDASE BETA [Suspect]
     Active Substance: AGALSIDASE BETA
     Dosage: 85 : Q2
     Route: 041
     Dates: start: 20151230
  2. AGALSIDASE BETA [Suspect]
     Active Substance: AGALSIDASE BETA
     Indication: FABRY^S DISEASE
     Dosage: UNK UNK,QOW
     Route: 041
     Dates: start: 20050725

REACTIONS (15)
  - Asthenia [Not Recovered/Not Resolved]
  - Memory impairment [Not Recovered/Not Resolved]
  - Syncope [Not Recovered/Not Resolved]
  - Cerebrovascular accident [Not Recovered/Not Resolved]
  - Incoherent [Not Recovered/Not Resolved]
  - Communication disorder [Not Recovered/Not Resolved]
  - Renal failure [Not Recovered/Not Resolved]
  - Back pain [Not Recovered/Not Resolved]
  - Tooth abscess [Unknown]
  - Malaise [Unknown]
  - Myocardial infarction [Recovering/Resolving]
  - Posture abnormal [Not Recovered/Not Resolved]
  - Transient ischaemic attack [Unknown]
  - Condition aggravated [Not Recovered/Not Resolved]
  - Pain [Not Recovered/Not Resolved]

NARRATIVE: CASE EVENT DATE: 201308
